FAERS Safety Report 5409957-3 (Version None)
Quarter: 2007Q3

REPORT INFORMATION
  Report Type: 
  Country: None (occurrence: None)
  Receive Date: 20070809
  Receipt Date: 20070419
  Transmission Date: 20080115
  Serious: Yes (Hospitalization, Other)
  Sender: FDA-Public Use
  Company Number: US-PFIZER INC-2007057882

PATIENT
  Sex: Female
  Weight: 59 kg

DRUGS (3)
  1. CELEBREX [Suspect]
     Indication: ARTHRITIS
     Route: 048
  2. CELEBREX [Suspect]
     Indication: PAIN
  3. CELEBREX [Suspect]
     Indication: BACK PAIN

REACTIONS (6)
  - BACK DISORDER [None]
  - BLINDNESS [None]
  - CEREBROVASCULAR ACCIDENT [None]
  - MEMORY IMPAIRMENT [None]
  - SPEECH DISORDER [None]
  - TRANSIENT ISCHAEMIC ATTACK [None]
